FAERS Safety Report 6495005-3 (Version None)
Quarter: 2009Q4

REPORT INFORMATION
  Report Type: 
  Country: None (occurrence: None)
  Receive Date: 20091214
  Receipt Date: 20090422
  Transmission Date: 20100525
  Serious: No
  Sender: FDA-Public Use
  Company Number: US-BRISTOL-MYERS SQUIBB COMPANY-14594642

PATIENT
  Age: 32 Year
  Sex: Female

DRUGS (2)
  1. ABILIFY [Suspect]
     Dosage: INITIAL DOSE: 2MG,5MG,7.5MG;DOSE DECREASED TO 5MG/QD, 2MG/QD.
  2. EFFEXOR [Concomitant]

REACTIONS (2)
  - METRORRHAGIA [None]
  - POLYMENORRHOEA [None]
